FAERS Safety Report 4431373-1 (Version None)
Quarter: 2004Q3

REPORT INFORMATION
  Report Type: 
  Country: None (occurrence: None)
  Receive Date: 20040820
  Receipt Date: 20040820
  Transmission Date: 20050211
  Serious: Yes (Death)
  Sender: FDA-Public Use
  Company Number: None

PATIENT
  Age: 54 Year
  Sex: Female
  Weight: 57.1532 kg

DRUGS (10)
  1. IRESSA [Suspect]
     Indication: LUNG NEOPLASM MALIGNANT
     Dosage: 250 MG QD
     Dates: start: 20040708, end: 20040723
  2. CELEBREX [Suspect]
     Indication: LUNG NEOPLASM MALIGNANT
     Dosage: 400 MG BID
     Dates: start: 20040708, end: 20040723
  3. ALBUTEROL [Concomitant]
  4. ATROVENT [Concomitant]
  5. MOXIFLOXACIN HCL [Concomitant]
  6. PREMPRO [Concomitant]
  7. PROTONIX [Concomitant]
  8. NAPROSYN [Concomitant]
  9. PREDNISONE [Concomitant]
  10. ZYRTEC [Concomitant]

REACTIONS (11)
  - ANXIETY [None]
  - ARTHRITIS [None]
  - COMPUTERISED TOMOGRAM ABNORMAL [None]
  - CONDITION AGGRAVATED [None]
  - DYSPNOEA [None]
  - HYPOXIA [None]
  - LUNG NEOPLASM MALIGNANT [None]
  - MALIGNANT NEOPLASM PROGRESSION [None]
  - PLEURAL EFFUSION [None]
  - PNEUMONIA [None]
  - PULMONARY OEDEMA [None]
